FAERS Safety Report 7126444-5 (Version None)
Quarter: 2010Q4

REPORT INFORMATION
  Report Type: 
  Country: None (occurrence: None)
  Receive Date: 20101115
  Receipt Date: 20101109
  Transmission Date: 20110411
  Serious: Yes (Hospitalization)
  Sender: FDA-Public Use
  Company Number: 2009AC000118

PATIENT
  Age: 50 Year
  Sex: Male

DRUGS (70)
  1. DIGOXIN [Suspect]
     Dosage: 250 MCG;QD;PO
     Route: 048
     Dates: start: 20020502, end: 20060312
  2. DIGOXIN [Suspect]
     Dosage: 250 MCG;QD;PO
     Route: 048
     Dates: start: 19940501
  3. KLOR-CON [Concomitant]
  4. THEOPHYLLINE [Concomitant]
  5. GLUCOVANCE [Concomitant]
  6. SEREVENT [Concomitant]
  7. ACETAZOLAMIDE [Concomitant]
  8. FUROSEMIDE [Concomitant]
  9. SYNTHROID [Concomitant]
  10. NEPHRO-VITE [Concomitant]
  11. LOTENSIN [Concomitant]
  12. SINGULAIR [Concomitant]
  13. ALBUTEROL [Concomitant]
  14. ATROVENT [Concomitant]
  15. IBUPROFEN [Concomitant]
  16. MUPIROCIN 2% OINTMENT [Concomitant]
  17. BENAZEPRIL HYDROCHLORIDE [Concomitant]
  18. LEVOTHYROXINE SODIUM [Concomitant]
  19. ASPIRIN [Concomitant]
  20. FERROUS SULFATE [Concomitant]
  21. ACTOS [Concomitant]
  22. RENAGEL [Concomitant]
  23. HYDROXYZINE [Concomitant]
  24. OMNICEF [Concomitant]
  25. IPRATROPIUM BR [Concomitant]
  26. COMBIVENT [Concomitant]
  27. MAGNESIUM OXIDE [Concomitant]
  28. NICOTINE [Concomitant]
  29. WARFARIN SODIUM [Concomitant]
  30. POLYETHYLENE GLYCOL [Concomitant]
  31. PREVACID [Concomitant]
  32. METOCLOPRAMIDE [Concomitant]
  33. FLUCONAZOLE [Concomitant]
  34. SULFAMETHOXAZOLE AND TRIMETHOPRIM [Concomitant]
  35. AMMONIUM LACTATE [Concomitant]
  36. DOXYCYCLINE HYCLATE [Concomitant]
  37. IPRATR-ALBUTEROL [Concomitant]
  38. SPIRIVA [Concomitant]
  39. METHYLPREDNISOLONE [Concomitant]
  40. AMMONIUM LACTATE [Concomitant]
  41. PROAIR HFA [Concomitant]
  42. LASIX [Concomitant]
  43. COMBIVENT [Concomitant]
  44. . [Concomitant]
  45. . [Concomitant]
  46. DIAMOX [Concomitant]
  47. DILANTIN [Concomitant]
  48. ASPIRIN [Concomitant]
  49. MAGNESIUM OXIDE [Concomitant]
  50. IRON SULFATETHIAMIN COMPOUND TAB [Concomitant]
  51. KIONEX [Concomitant]
  52. . [Concomitant]
  53. CALCIUM [Concomitant]
  54. . [Concomitant]
  55. OXYGEN [Concomitant]
  56. NITROGLYCERIN [Concomitant]
  57. GLYBURIDE [Concomitant]
  58. TAGAMET [Concomitant]
  59. PEPCID [Concomitant]
  60. TYLENOL (CAPLET) [Concomitant]
  61. ZAROXOLYN [Concomitant]
  62. LANTOS INSULIN [Concomitant]
  63. HUMALOG [Concomitant]
  64. KAYEXALATE [Concomitant]
  65. MIRALAX [Concomitant]
  66. BENICAR [Concomitant]
  67. ADVAIR DISKUS 100/50 [Concomitant]
  68. STEROIDS [Concomitant]
  69. WELLBUTRIN [Concomitant]
  70. PHENYTOIN SODIUM [Concomitant]

REACTIONS (62)
  - ACUTE RESPIRATORY FAILURE [None]
  - ANAEMIA [None]
  - ANAEMIA OF CHRONIC DISEASE [None]
  - ASTHMA [None]
  - ATRIOVENTRICULAR BLOCK FIRST DEGREE [None]
  - BENIGN BONE NEOPLASM [None]
  - BRONCHITIS [None]
  - BRONCHOPNEUMONIA [None]
  - CARDIAC FAILURE CONGESTIVE [None]
  - CELLULITIS [None]
  - CHEST PAIN [None]
  - CHRONIC OBSTRUCTIVE PULMONARY DISEASE [None]
  - CHRONIC RESPIRATORY FAILURE [None]
  - COLONIC POLYP [None]
  - CONDITION AGGRAVATED [None]
  - CONSTIPATION [None]
  - CONVULSION [None]
  - DEEP VEIN THROMBOSIS [None]
  - DIABETES MELLITUS INADEQUATE CONTROL [None]
  - DIABETIC NEPHROPATHY [None]
  - DIVERTICULUM INTESTINAL [None]
  - DIZZINESS [None]
  - ECONOMIC PROBLEM [None]
  - ELECTROCARDIOGRAM QRS COMPLEX ABNORMAL [None]
  - ELECTROCARDIOGRAM ST SEGMENT ABNORMAL [None]
  - ELECTROLYTE IMBALANCE [None]
  - EMPHYSEMA [None]
  - GASTRITIS [None]
  - HAEMODIALYSIS [None]
  - HEADACHE [None]
  - HYPERKALAEMIA [None]
  - HYPERTENSION [None]
  - HYPERTENSIVE HEART DISEASE [None]
  - HYPOGLYCAEMIA [None]
  - HYPONATRAEMIA [None]
  - HYPOTHYROIDISM [None]
  - HYPOXIA [None]
  - INGUINAL HERNIA [None]
  - IRRITABLE BOWEL SYNDROME [None]
  - LOBAR PNEUMONIA [None]
  - LYMPHADENOPATHY [None]
  - MULTIPLE INJURIES [None]
  - NAUSEA [None]
  - OSTEOARTHRITIS [None]
  - PANCREATITIS ACUTE [None]
  - PLEURAL EFFUSION [None]
  - PNEUMOCONIOSIS [None]
  - PNEUMONIA STREPTOCOCCAL [None]
  - PNEUMONITIS [None]
  - PULMONARY MASS [None]
  - PULMONARY VASCULAR DISORDER [None]
  - RENAL CYST [None]
  - RENAL FAILURE ACUTE [None]
  - RENAL FAILURE CHRONIC [None]
  - SKIN ULCER [None]
  - SOCIAL PROBLEM [None]
  - STREPTOCOCCUS TEST POSITIVE [None]
  - THERAPEUTIC AGENT TOXICITY [None]
  - URINARY TRACT INFECTION [None]
  - VISION BLURRED [None]
  - VOMITING [None]
  - WEIGHT DECREASED [None]
